FAERS Safety Report 8407777-9 (Version None)
Quarter: 2012Q2

REPORT INFORMATION
  Report Type: 
  Country: None (occurrence: None)
  Receive Date: 20120604
  Receipt Date: 20120529
  Transmission Date: 20120825
  Serious: Yes (Congenital Anomaly)
  Sender: FDA-Public Use
  Company Number: US-GLAXOSMITHKLINE-A0979871A

PATIENT
  Sex: Male

DRUGS (1)
  1. PAROXETINE HCL [Suspect]
     Indication: DEPRESSION
     Dosage: 20MG THREE TIMES PER DAY
     Route: 048
     Dates: start: 20030101

REACTIONS (6)
  - FOETAL EXPOSURE DURING PREGNANCY [None]
  - HEAD DEFORMITY [None]
  - VENTRICULAR SEPTAL DEFECT [None]
  - ATRIAL SEPTAL DEFECT [None]
  - ANAL ATRESIA [None]
  - CONGENITAL RENAL CYST [None]
